FAERS Safety Report 18054884 (Version 2)
Quarter: 2020Q3

REPORT INFORMATION
  Report Type: Spontaneous
  Country: AU (occurrence: AU)
  Receive Date: 20200722
  Receipt Date: 20200810
  Transmission Date: 20201103
  Serious: Yes (Other)
  Sender: FDA-Public Use
  Company Number: AU-NOVOPROD-740971

PATIENT
  Sex: Female

DRUGS (1)
  1. SAXENDA [Suspect]
     Active Substance: LIRAGLUTIDE
     Indication: WEIGHT CONTROL
     Dosage: 1.2 MG, QD
     Route: 058

REACTIONS (4)
  - Nausea [Recovered/Resolved]
  - Thyroid mass [Unknown]
  - Dyspepsia [Unknown]
  - Dysphonia [Unknown]
